FAERS Safety Report 6819938-0 (Version None)
Quarter: 2010Q3

REPORT INFORMATION
  Report Type: 
  Country: None (occurrence: None)
  Receive Date: 20100707
  Receipt Date: 20100627
  Transmission Date: 20110219
  Serious: Yes (Hospitalization)
  Sender: FDA-Public Use
  Company Number: IL-ROCHE-707149

PATIENT
  Age: 24 Month
  Sex: Male
  Weight: 13 kg

DRUGS (3)
  1. OSELTAMIVIR [Suspect]
     Indication: H1N1 INFLUENZA
     Route: 050
  2. OSELTAMIVIR [Suspect]
     Route: 050
  3. ACETAMINOPHEN [Concomitant]
     Dosage: FEVER AND COUGH

REACTIONS (4)
  - ACUTE RESPIRATORY DISTRESS SYNDROME [None]
  - DRUG INEFFECTIVE [None]
  - PATHOGEN RESISTANCE [None]
  - RIGHT VENTRICULAR FAILURE [None]
